FAERS Safety Report 5339830-0 (Version None)
Quarter: 2007Q2

REPORT INFORMATION
  Report Type: 
  Country: None (occurrence: None)
  Receive Date: 20070531
  Receipt Date: 20070521
  Transmission Date: 20071010
  Serious: Yes (Hospitalization)
  Sender: FDA-Public Use
  Company Number: HQWYE312422MAY07

PATIENT
  Sex: Female
  Weight: 90.8 kg

DRUGS (3)
  1. ADVIL [Suspect]
     Indication: HEADACHE
     Dosage: 2 TABLETS DAILY AS NEEDED
     Route: 048
     Dates: end: 20070519
  2. ADVIL [Suspect]
     Indication: BACK PAIN
  3. ALLEGRA [Concomitant]
     Dosage: UNKNOWN
     Route: 065
     Dates: start: 20070501

REACTIONS (5)
  - GENERALISED ERYTHEMA [None]
  - JOINT SWELLING [None]
  - RASH [None]
  - SWELLING FACE [None]
  - URTICARIA [None]
